FAERS Safety Report 8227873-9 (Version None)
Quarter: 2012Q1

REPORT INFORMATION
  Report Type: 
  Country: None (occurrence: None)
  Receive Date: 20120322
  Receipt Date: 20120314
  Transmission Date: 20120608
  Serious: Yes (Hospitalization)
  Sender: FDA-Public Use
  Company Number: US-BAYER-2012-008766

PATIENT
  Age: 26 Year
  Sex: Female
  Weight: 111 kg

DRUGS (15)
  1. YASMIN [Suspect]
     Indication: PREMENSTRUAL SYNDROME
  2. YASMIN [Suspect]
     Indication: ENDOMETRIOSIS
  3. XOPENEX [Concomitant]
     Dosage: UNK UNK, PRN
     Dates: start: 20060801
  4. ALBUTEROL [Concomitant]
     Dosage: UNK
     Dates: start: 20060801
  5. YAZ [Suspect]
     Indication: PREMENSTRUAL SYNDROME
  6. YAZ [Suspect]
     Indication: ENDOMETRIOSIS
  7. YASMIN [Suspect]
     Indication: CONTRACEPTION
     Dosage: UNK
     Dates: start: 20060701, end: 20070201
  8. ADVAIR DISKUS 100/50 [Concomitant]
     Dosage: UNK
     Dates: start: 20060801
  9. ASTELIN [Concomitant]
     Dosage: 1 PUFF(S), QD
     Route: 055
  10. SINGULAIR [Concomitant]
     Dosage: 10 MG, QD
     Route: 055
  11. MIRAPEX [Concomitant]
     Indication: RESTLESS LEGS SYNDROME
     Dosage: 0.125 MG, UNK
  12. YAZ [Suspect]
     Indication: CONTRACEPTION
     Dosage: UNK
     Dates: start: 20060701, end: 20070201
  13. AMBIEN [Concomitant]
     Dosage: 5 MG, PRN
     Route: 048
     Dates: start: 20070111
  14. NITROFURANTOIN [Concomitant]
     Dosage: UNK
     Dates: start: 20070105
  15. PREDNISONE TAB [Concomitant]

REACTIONS (9)
  - ASTHMA [None]
  - INJURY [None]
  - WEIGHT INCREASED [None]
  - EMOTIONAL DISTRESS [None]
  - PULMONARY EMBOLISM [None]
  - BRONCHITIS [None]
  - PAIN [None]
  - GENERAL PHYSICAL HEALTH DETERIORATION [None]
  - ANXIETY [None]
